FAERS Safety Report 7913595-8 (Version None)
Quarter: 2011Q4

REPORT INFORMATION
  Report Type: 
  Country: None (occurrence: None)
  Receive Date: 20111115
  Receipt Date: 20111109
  Transmission Date: 20120403
  Serious: No
  Sender: FDA-Public Use
  Company Number: US-PFIZER INC-2011277087

PATIENT

DRUGS (7)
  1. CALTRATE 600+D [Concomitant]
     Dosage: UNK, DAILY
  2. IBUPROFEN (ADVIL) [Interacting]
     Indication: BACK PAIN
     Dosage: 400 MG, UNK
  3. OMEPRAZOLE [Concomitant]
     Dosage: 20 MG, 2X/DAY
  4. NOREPINEPHRINE BITARTRATE [Suspect]
  5. LEVOTHYROXINE [Concomitant]
     Dosage: 50 UG, DAILY
  6. IBUPROFEN (ADVIL) [Interacting]
     Indication: HEADACHE
  7. CENTRUM [Concomitant]
     Dosage: UNK, DAILY

REACTIONS (2)
  - DRUG INTERACTION [None]
  - CONTUSION [None]
